FAERS Safety Report 11458291 (Version 1)
Quarter: 2015Q3

REPORT INFORMATION
  Report Type: Spontaneous
  Country: BR (occurrence: BR)
  Receive Date: 20150904
  Receipt Date: 20150904
  Transmission Date: 20151125
  Serious: Yes (Hospitalization, Disabling)
  Sender: FDA-Public Use
  Company Number: BR-009507513-1408BRA015764

PATIENT
  Age: 27 Year
  Sex: Female
  Weight: 80 kg

DRUGS (2)
  1. PROPRANOLOL HYDROCHLORIDE. [Concomitant]
     Active Substance: PROPRANOLOL HYDROCHLORIDE
     Indication: HEART DISEASE CONGENITAL
     Dosage: 40 MG, TID
     Route: 048
     Dates: start: 2009
  2. IMPLANON [Suspect]
     Active Substance: ETONOGESTREL
     Indication: CONTRACEPTION
     Dosage: 1 ROD, UNK
     Route: 059
     Dates: start: 201203

REACTIONS (13)
  - Menstruation irregular [Recovered/Resolved]
  - Weight increased [Not Recovered/Not Resolved]
  - Breast feeding [Unknown]
  - Lactation disorder [Not Recovered/Not Resolved]
  - Menorrhagia [Recovered/Resolved]
  - Menorrhagia [Not Recovered/Not Resolved]
  - Stress [Not Recovered/Not Resolved]
  - Medical device complication [Not Recovered/Not Resolved]
  - Device difficult to use [Not Recovered/Not Resolved]
  - Incorrect drug administration duration [Unknown]
  - Crying [Not Recovered/Not Resolved]
  - Menstruation normal [Not Recovered/Not Resolved]
  - Device difficult to use [Not Recovered/Not Resolved]

NARRATIVE: CASE EVENT DATE: 201203
